FAERS Safety Report 12471418 (Version 1)
Quarter: 2016Q2

REPORT INFORMATION
  Report Type: Spontaneous
  Country: US (occurrence: None)
  Receive Date: 20160615
  Receipt Date: 20160615
  Transmission Date: 20160815
  Serious: Yes (Other)
  Sender: FDA-Public Use
  Company Number: None

PATIENT
  Age: 61 Year
  Sex: Female
  Weight: 60.5 kg

DRUGS (2)
  1. ALENDRONATE [Suspect]
     Active Substance: ALENDRONATE SODIUM
     Indication: OSTEOPOROSIS
     Route: 048
     Dates: start: 20140321, end: 20160613
  2. LEVOTHYROXINE. [Suspect]
     Active Substance: LEVOTHYROXINE
     Indication: HYPOTHYROIDISM
     Route: 048
     Dates: start: 20150318, end: 20160613

REACTIONS (7)
  - Vomiting [None]
  - Femur fracture [None]
  - Nausea [None]
  - Rib fracture [None]
  - Sacroiliac fracture [None]
  - Intervertebral disc degeneration [None]
  - Therapy change [None]

NARRATIVE: CASE EVENT DATE: 20160613
